FAERS Safety Report 8592166-7 (Version None)
Quarter: 2012Q3

REPORT INFORMATION
  Report Type: 
  Country: None (occurrence: None)
  Receive Date: 20120814
  Receipt Date: 20120802
  Transmission Date: 20120928
  Serious: Yes (Other)
  Sender: FDA-Public Use
  Company Number: AU-ELI_LILLY_AND_COMPANY-AU201208000863

PATIENT
  Age: 18 Year
  Sex: Male

DRUGS (4)
  1. ZYPREXA [Suspect]
     Dosage: 15 MG, QD
  2. ZYPREXA [Suspect]
     Indication: DEPRESSION
     Dosage: 7.5 MG, QD
     Route: 048
     Dates: start: 20120601
  3. FLUOXETINE HCL [Suspect]
     Indication: DEPRESSION
     Dosage: 60 MG, QD
     Route: 048
  4. CLONAZEPAM [Concomitant]
     Dosage: 2 MG, QD

REACTIONS (3)
  - OFF LABEL USE [None]
  - BLOOD CREATINE PHOSPHOKINASE DECREASED [None]
  - RHABDOMYOLYSIS [None]
